FAERS Safety Report 5191642-7 (Version None)
Quarter: 2006Q4

REPORT INFORMATION
  Report Type: 
  Country: None (occurrence: None)
  Receive Date: 20061219
  Receipt Date: 20061206
  Transmission Date: 20070319
  Serious: Yes (Hospitalization, Other)
  Sender: FDA-Public Use
  Company Number: 2006150555

PATIENT
  Age: 81 Year
  Sex: Male

DRUGS (6)
  1. CABERGOLINE [Suspect]
     Dosage: 50 MG, ORAL
     Route: 048
  2. TANDOSPIRONE CITRATE (TANDOSPIRONE CITRATE) [Suspect]
     Dosage: 10 MG
  3. DONEPEZIL HCL [Concomitant]
  4. LEVODOPA-CARBIDOPA (CABIDOPA, LEVODOPA) [Concomitant]
  5. QUETIAPINE FUMARATE [Concomitant]
  6. TIAPRIDE HYDROCHLORIDE (TIAPRIDE HYDROCHLORIDE) [Suspect]
     Dosage: 25 MG

REACTIONS (21)
  - AFFECT LABILITY [None]
  - AGITATION [None]
  - ANXIETY [None]
  - CARDIOVASCULAR DISORDER [None]
  - CEREBRAL ATROPHY [None]
  - COGNITIVE DISORDER [None]
  - DELIRIUM [None]
  - DEMENTIA [None]
  - DISORIENTATION [None]
  - DISTURBANCE IN ATTENTION [None]
  - DYSCALCULIA [None]
  - HALLUCINATION, VISUAL [None]
  - JUDGEMENT IMPAIRED [None]
  - MEMORY IMPAIRMENT [None]
  - MUSCLE RIGIDITY [None]
  - PARKINSONIAN GAIT [None]
  - SALIVARY HYPERSECRETION [None]
  - SOMNOLENCE [None]
  - TENSION [None]
  - TOURETTE'S DISORDER [None]
  - TREMOR [None]
